FAERS Safety Report 10397349 (Version 1)
Quarter: 2014Q3

REPORT INFORMATION
  Report Type: Spontaneous
  Country: US (occurrence: US)
  Receive Date: 20140820
  Receipt Date: 20140820
  Transmission Date: 20150326
  Serious: Yes (Other)
  Sender: FDA-Public Use
  Company Number: ALCN2014US004642

PATIENT
  Age: 59 Year
  Sex: Male

DRUGS (4)
  1. KETOROLAC TROMETHAMINE. [Suspect]
     Active Substance: KETOROLAC TROMETHAMINE
     Indication: SCLERAL DISORDER
     Dosage: 1 DF, TID
     Route: 047
     Dates: end: 201102
  2. CYCLOSPORINE. [Concomitant]
     Active Substance: CYCLOSPORINE
     Indication: SCLERAL DISORDER
     Dosage: 1 DF, PRN
     Route: 047
     Dates: start: 201006
  3. EPINASTINE [Concomitant]
     Active Substance: EPINASTINE
     Indication: SCLERAL DISORDER
     Dosage: 1 DF, PRN
     Route: 047
     Dates: start: 201006
  4. OLOPATADINE [Suspect]
     Active Substance: OLOPATADINE
     Indication: SCLERAL DISORDER
     Dosage: 1 DF, PRN
     Route: 047
     Dates: start: 201006

REACTIONS (4)
  - Off label use [Not Recovered/Not Resolved]
  - Necrotising scleritis [Not Recovered/Not Resolved]
  - Scleral disorder [Not Recovered/Not Resolved]
  - Drug ineffective for unapproved indication [Not Recovered/Not Resolved]

NARRATIVE: CASE EVENT DATE: 201006
